FAERS Safety Report 11918401 (Version 2)
Quarter: 2016Q1

REPORT INFORMATION
  Report Type: Spontaneous
  Country: FR (occurrence: FR)
  Receive Date: 20160115
  Receipt Date: 20160205
  Transmission Date: 20160526
  Serious: Yes (Other)
  Sender: FDA-Public Use
  Company Number: FR-ASTRAZENECA-2016SE02702

PATIENT
  Age: 28272 Day
  Sex: Male

DRUGS (2)
  1. VESICARE [Concomitant]
     Active Substance: SOLIFENACIN SUCCINATE
     Indication: BLADDER SPASM
     Dates: start: 20110310
  2. IRESSA [Suspect]
     Active Substance: GEFITINIB
     Indication: NON-SMALL CELL LUNG CANCER
     Route: 048
     Dates: start: 201412, end: 201601

REACTIONS (2)
  - Creatinine renal clearance decreased [Unknown]
  - Metastases to liver [Unknown]

NARRATIVE: CASE EVENT DATE: 20160105
